FAERS Safety Report 5779816-5 (Version None)
Quarter: 2008Q2

REPORT INFORMATION
  Report Type: 
  Country: None (occurrence: None)
  Receive Date: 20080618
  Receipt Date: 20080603
  Transmission Date: 20081010
  Serious: Yes (Hospitalization)
  Sender: FDA-Public Use
  Company Number: 2008BI014193

PATIENT
  Age: 38 Year
  Sex: Female

DRUGS (2)
  1. TYSABRI [Suspect]
     Indication: PROGRESSIVE RELAPSING MULTIPLE SCLEROSIS
     Dosage: 300 MG;QM;IV
     Route: 042
     Dates: start: 20071101, end: 20080401
  2. REBIF [Concomitant]

REACTIONS (14)
  - BALANCE DISORDER [None]
  - COGNITIVE DISORDER [None]
  - COMA [None]
  - DISEASE PROGRESSION [None]
  - DRUG SPECIFIC ANTIBODY PRESENT [None]
  - FATIGUE [None]
  - GAIT DISTURBANCE [None]
  - ILL-DEFINED DISORDER [None]
  - INFLAMMATION [None]
  - INFUSION RELATED REACTION [None]
  - MACROPHAGES INCREASED [None]
  - MALAISE [None]
  - NERVOUS SYSTEM DISORDER [None]
  - SPEECH DISORDER [None]
